FAERS Safety Report 15339646 (Version 1)
Quarter: 2018Q3

REPORT INFORMATION
  Report Type: Spontaneous
  Country: US (occurrence: US)
  Receive Date: 20180831
  Receipt Date: 20180831
  Transmission Date: 20181010
  Serious: No
  Sender: FDA-Public Use
  Company Number: US-009507513-1808USA009179

PATIENT
  Sex: Female

DRUGS (1)
  1. DULERA [Suspect]
     Active Substance: FORMOTEROL FUMARATE DIHYDRATE\MOMETASONE FUROATE
     Dosage: 1 DF, UNK
     Dates: start: 20180807

REACTIONS (4)
  - Product taste abnormal [Unknown]
  - Intentional product misuse [Unknown]
  - Poor quality drug administered [Unknown]
  - No adverse event [Unknown]

NARRATIVE: CASE EVENT DATE: 20180807
